FAERS Safety Report 6067862-6 (Version None)
Quarter: 2009Q1

REPORT INFORMATION
  Report Type: 
  Country: None (occurrence: None)
  Receive Date: 20090203
  Receipt Date: 20090123
  Transmission Date: 20090719
  Serious: Yes (Death)
  Sender: FDA-Public Use
  Company Number: IMP_04069_2009

PATIENT
  Age: 35 Year
  Sex: Male

DRUGS (3)
  1. ALPRAZOLAM [Suspect]
     Indication: DRUG USE FOR UNKNOWN INDICATION
     Dosage: DF, PARENTERAL
     Route: 051
  2. HALOPERIDOL [Suspect]
     Indication: DRUG USE FOR UNKNOWN INDICATION
     Dosage: DF; PARENTERAL
     Route: 051
  3. COCAINE [Suspect]
     Indication: DRUG USE FOR UNKNOWN INDICATION
     Dosage: DF; PARENTERAL
     Route: 051

REACTIONS (7)
  - ADVERSE DRUG REACTION [None]
  - AGITATION [None]
  - CARDIAC ARREST [None]
  - DELUSION [None]
  - HALLUCINATION [None]
  - POISONING [None]
  - SARCOIDOSIS [None]
